FAERS Safety Report 13433358 (Version 3)
Quarter: 2017Q2

REPORT INFORMATION
  Report Type: Report from Study
  Country: JP (occurrence: JP)
  Receive Date: 20170412
  Receipt Date: 20170510
  Transmission Date: 20170830
  Serious: Yes (Hospitalization)
  Sender: FDA-Public Use
  Company Number: JP-EISAI MEDICAL RESEARCH-EC-2017-026587

PATIENT
  Age: 49 Year
  Sex: Female
  Weight: 52 kg

DRUGS (9)
  1. LENVATINIB [Suspect]
     Active Substance: LENVATINIB
     Indication: RECTAL CANCER
     Dates: start: 20170224, end: 2017
  2. LENVATINIB [Suspect]
     Active Substance: LENVATINIB
     Dates: start: 20170502
  3. LOXOPROFEN [Concomitant]
     Active Substance: LOXOPROFEN
  4. AZUNOL GARGLE LIQUID [Concomitant]
  5. MOSAPRIDE CITRATE HYDRATE [Concomitant]
     Active Substance: MOSAPRIDE CITRATE DIHYDRATE
  6. MEXITIL [Concomitant]
     Active Substance: MEXILETINE HYDROCHLORIDE
  7. NERIPROCT [Concomitant]
     Active Substance: DIFLUCORTOLONE VALERATE\LIDOCAINE
  8. MAGMITT [Concomitant]
     Active Substance: MAGNESIUM OXIDE
  9. AMLODIPINE [Concomitant]
     Active Substance: AMLODIPINE BESYLATE

REACTIONS (1)
  - Staphylococcal infection [Recovered/Resolved]

NARRATIVE: CASE EVENT DATE: 20170405
